FAERS Safety Report 5814246-9 (Version None)
Quarter: 2008Q3

REPORT INFORMATION
  Report Type: 
  Country: None (occurrence: None)
  Receive Date: 20080717
  Receipt Date: 20080707
  Transmission Date: 20090109
  Serious: Yes (Life-Threatening, Hospitalization, Disabling)
  Sender: FDA-Public Use
  Company Number: FR-AMGEN-UK284473

PATIENT
  Sex: Female

DRUGS (12)
  1. MIMPARA [Suspect]
     Indication: PARATHYROID TUMOUR MALIGNANT
     Route: 048
     Dates: start: 20060927
  2. PREVISCAN [Concomitant]
     Route: 065
     Dates: start: 20070301
  3. LASIX [Concomitant]
     Route: 065
     Dates: start: 20070301
  4. RAMIPRIL [Concomitant]
     Route: 065
  5. LEVOTHYROX [Concomitant]
     Route: 065
     Dates: start: 19960101
  6. BISOPROLOL FUMARATE [Concomitant]
     Route: 065
  7. ALDACTONE [Concomitant]
     Route: 048
  8. IMOVANE [Concomitant]
     Route: 065
  9. ZYLORIC [Concomitant]
     Route: 065
  10. LIPANTHYL [Concomitant]
     Route: 065
  11. IRBESARTAN [Concomitant]
     Route: 065
  12. TRAMADOL HCL [Concomitant]
     Route: 065

REACTIONS (4)
  - ARTHRALGIA [None]
  - CHONDROCALCINOSIS [None]
  - CONGESTIVE CARDIOMYOPATHY [None]
  - CUSHINGOID [None]
